FAERS Safety Report 13251942 (Version 3)
Quarter: 2017Q2

REPORT INFORMATION
  Report Type: Spontaneous
  Country: US (occurrence: US)
  Receive Date: 20170220
  Receipt Date: 20170613
  Transmission Date: 20170830
  Serious: Yes (Hospitalization)
  Sender: FDA-Public Use
  Company Number: US-ACTELION-A-US2017-150013

PATIENT
  Age: 51 Year
  Sex: Female
  Weight: 124.72 kg

DRUGS (7)
  1. INSULINE GLARGINE [Concomitant]
     Active Substance: INSULIN GLARGINE
     Dosage: UNK
  2. FUROSEMIDE. [Concomitant]
     Active Substance: FUROSEMIDE
     Dosage: UNK
  3. HUMULIN NOS [Concomitant]
     Active Substance: INSULIN HUMAN
     Dosage: UNK
  4. VELETRI [Suspect]
     Active Substance: EPOPROSTENOL
     Indication: PULMONARY HYPERTENSION
     Dosage: 48 NG/KG, PER MIN
     Route: 042
     Dates: start: 20150718
  5. VELETRI [Suspect]
     Active Substance: EPOPROSTENOL
     Dosage: 49 NG/KG, PER MIN
     Route: 042
     Dates: start: 20150718
  6. METOLAZONE. [Concomitant]
     Active Substance: METOLAZONE
     Dosage: UNK
  7. COUMADIN [Concomitant]
     Active Substance: WARFARIN SODIUM

REACTIONS (2)
  - Cellulitis [Unknown]
  - Pneumonia [Recovering/Resolving]

NARRATIVE: CASE EVENT DATE: 20170524
